FAERS Safety Report 12421493 (Version 2)
Quarter: 2018Q4

REPORT INFORMATION
  Report Type: Spontaneous
  Country: US (occurrence: US)
  Receive Date: 20160531
  Receipt Date: 20181001
  Transmission Date: 20190204
  Serious: No
  Sender: FDA-Public Use
  Company Number: US-TAKEDA-2016MPI004731

PATIENT
  Sex: Female

DRUGS (15)
  1. NINLARO [Suspect]
     Active Substance: IXAZOMIB CITRATE
     Indication: PLASMA CELL MYELOMA
     Dosage: 3 MG, 1/WEEK
     Route: 048
     Dates: start: 20160210, end: 201804
  2. CLINDAMYCIN. [Concomitant]
     Active Substance: CLINDAMYCIN
     Dosage: 300 MG, UNK
  3. LOSARTAN/HCT [Concomitant]
     Active Substance: HYDROCHLOROTHIAZIDE\LOSARTAN POTASSIUM
     Dosage: UNK
  4. APAP/CODEINE [Concomitant]
     Active Substance: ACETAMINOPHEN\CODEINE PHOSPHATE
     Dosage: UNK
  5. VALSARTAN/HCTZ TEVA [Concomitant]
     Dosage: UNK
  6. VALACYCLOVIR [Concomitant]
     Active Substance: VALACYCLOVIR HYDROCHLORIDE
     Dosage: 500 MG, UNK
  7. ATENOLOL. [Concomitant]
     Active Substance: ATENOLOL
     Dosage: UNK
  8. DULOXETINE. [Concomitant]
     Active Substance: DULOXETINE
     Dosage: UNK
  9. AZITHROMYCIN ANHYDROUS. [Concomitant]
     Active Substance: AZITHROMYCIN ANHYDROUS
     Dosage: UNK
  10. FLUOROURACIL. [Concomitant]
     Active Substance: FLUOROURACIL
     Dosage: UNK
  11. FUROSEMIDE. [Concomitant]
     Active Substance: FUROSEMIDE
     Dosage: 20 MG, UNK
  12. ZOLPIDEM [Concomitant]
     Active Substance: ZOLPIDEM\ZOLPIDEM TARTRATE
     Dosage: UNK
  13. WARFARIN [Concomitant]
     Active Substance: WARFARIN
     Dosage: UNK
  14. HYDROCODONE BITARTRATE AND ACETAMINOPHEN [Concomitant]
     Active Substance: ACETAMINOPHEN\HYDROCODONE BITARTRATE
     Dosage: UNK
  15. CEPHALEXIN                         /00145501/ [Concomitant]
     Active Substance: CEPHALEXIN
     Dosage: UNK

REACTIONS (1)
  - Diarrhoea [Recovered/Resolved]

NARRATIVE: CASE EVENT DATE: 2016
